FAERS Safety Report 25157647 (Version 1)
Quarter: 2025Q2

REPORT INFORMATION
  Report Type: Spontaneous
  Country: US (occurrence: US)
  Receive Date: 20250403
  Receipt Date: 20250403
  Transmission Date: 20250717
  Serious: No
  Sender: BIOMARIN
  Company Number: US-BIOMARINAP-US-2025-164986

PATIENT

DRUGS (3)
  1. BRINEURA [Suspect]
     Active Substance: CERLIPONASE ALFA
     Indication: Neuronal ceroid lipofuscinosis
     Route: 020
     Dates: start: 20250331
  2. DIPHENHYDRAMINE [Concomitant]
     Active Substance: DIPHENHYDRAMINE
     Indication: Premedication
     Dates: start: 20250331
  3. ACETAMINOPHEN [Concomitant]
     Active Substance: ACETAMINOPHEN
     Indication: Premedication
     Dates: start: 20250331

REACTIONS (2)
  - Infusion related reaction [Recovered/Resolved]
  - Pyrexia [Recovered/Resolved]

NARRATIVE: CASE EVENT DATE: 20250331
